FAERS Safety Report 20454538 (Version 2)
Quarter: 2022Q1

REPORT INFORMATION
  Report Type: Report from Study
  Country: DE (occurrence: DE)
  Receive Date: 20220210
  Receipt Date: 20220215
  Transmission Date: 20220424
  Serious: Yes (Other)
  Sender: FDA-Public Use
  Company Number: DE-TAKEDA-2022TUS006858

PATIENT
  Age: 28 Year
  Sex: Male
  Weight: 78 kg

DRUGS (6)
  1. ANTIHEMOPHILIC FACTOR, PEGYLATED (MW 20000) HUMAN SEQUENCE RECOMBINANT [Suspect]
     Active Substance: ANTIHEMOPHILIC FACTOR, PEGYLATED (MW 20000) HUMAN SEQUENCE RECOMBINANT
     Indication: Factor VIII deficiency
     Dosage: 3000 INTERNATIONAL UNIT
     Route: 042
     Dates: start: 20191125
  2. ANTIHEMOPHILIC FACTOR, PEGYLATED (MW 20000) HUMAN SEQUENCE RECOMBINANT [Suspect]
     Active Substance: ANTIHEMOPHILIC FACTOR, PEGYLATED (MW 20000) HUMAN SEQUENCE RECOMBINANT
     Indication: Factor VIII deficiency
     Dosage: 3000 INTERNATIONAL UNIT
     Route: 042
     Dates: start: 20191125
  3. ANTIHEMOPHILIC FACTOR, PEGYLATED (MW 20000) HUMAN SEQUENCE RECOMBINANT [Suspect]
     Active Substance: ANTIHEMOPHILIC FACTOR, PEGYLATED (MW 20000) HUMAN SEQUENCE RECOMBINANT
     Indication: Factor VIII deficiency
     Dosage: 3000 INTERNATIONAL UNIT
     Route: 042
     Dates: start: 20191125
  4. ARCOXIA [Concomitant]
     Active Substance: ETORICOXIB
     Indication: Swelling
     Dosage: 90 MILLIGRAM, QD
     Route: 048
     Dates: start: 20171115, end: 20180215
  5. ARCOXIA [Concomitant]
     Active Substance: ETORICOXIB
     Indication: Haemophilic arthropathy
     Dosage: 60 MILLIGRAM, QD
     Route: 048
     Dates: start: 20180423
  6. PANTOPRAZOLE SODIUM [Concomitant]
     Active Substance: PANTOPRAZOLE SODIUM
     Indication: Gastrointestinal disorder
     Dosage: 20 MILLIGRAM, QD
     Route: 048
     Dates: start: 20180423

REACTIONS (1)
  - Contusion [Recovered/Resolved]

NARRATIVE: CASE EVENT DATE: 20200526
